FAERS Safety Report 5624475-5 (Version None)
Quarter: 2008Q1

REPORT INFORMATION
  Report Type: 
  Country: None (occurrence: None)
  Receive Date: 20080211
  Receipt Date: 20080211
  Transmission Date: 20080703
  Serious: Yes (Other)
  Sender: FDA-Public Use
  Company Number: None

PATIENT
  Age: 51 Year
  Sex: Female
  Weight: 94.8018 kg

DRUGS (2)
  1. CYMBALTA [Suspect]
     Indication: PAIN
     Dosage: 30 MG TWICE DAILY PO
     Route: 048
     Dates: start: 20071221, end: 20080131
  2. CYMBALTA [Suspect]
     Indication: SLEEP DISORDER
     Dosage: 30 MG TWICE DAILY PO
     Route: 048
     Dates: start: 20071221, end: 20080131

REACTIONS (9)
  - CRYING [None]
  - DIZZINESS [None]
  - DRUG WITHDRAWAL SYNDROME [None]
  - FEELING OF BODY TEMPERATURE CHANGE [None]
  - INSOMNIA [None]
  - NAUSEA [None]
  - NIGHTMARE [None]
  - TREATMENT NONCOMPLIANCE [None]
  - VOMITING [None]
